FAERS Safety Report 5533473-1 (Version None)
Quarter: 2007Q4

REPORT INFORMATION
  Report Type: 
  Country: None (occurrence: None)
  Receive Date: 20071120
  Receipt Date: 20070731
  Transmission Date: 20080405
  Serious: No
  Sender: FDA-Public Use
  Company Number: WAES 0705USA03668

PATIENT
  Age: 66 Year
  Sex: Male
  Weight: 65.7716 kg

DRUGS (2)
  1. JANUVIA [Suspect]
     Indication: TYPE 2 DIABETES MELLITUS
     Dosage: 100  MG/DAILY/PO
     Route: 048
  2. AVANDIA [Concomitant]

REACTIONS (4)
  - BLOOD GLUCOSE INCREASED [None]
  - DIARRHOEA [None]
  - HEADACHE [None]
  - NERVOUSNESS [None]
